FAERS Safety Report 6235408-5 (Version None)
Quarter: 2009Q2

REPORT INFORMATION
  Report Type: 
  Country: None (occurrence: None)
  Receive Date: 20090618
  Receipt Date: 20090427
  Transmission Date: 20091009
  Serious: No
  Sender: FDA-Public Use
  Company Number: US-ASTRAZENECA-2009UW06301

PATIENT
  Age: 21 Year
  Sex: Female
  Weight: 59 kg

DRUGS (6)
  1. ENTOCORT EC [Suspect]
     Route: 048
     Dates: start: 20090205, end: 20090307
  2. ENTOCORT EC [Suspect]
     Dosage: 2 TABLETS
     Route: 048
     Dates: start: 20090305, end: 20090301
  3. FE-TINIC [Concomitant]
  4. FOLIC ACID [Concomitant]
  5. G-MP [Concomitant]
     Indication: CROHN'S DISEASE
  6. BIRTH CONTROL PILLS [Concomitant]
     Indication: CONTRACEPTION

REACTIONS (7)
  - ABDOMINAL PAIN UPPER [None]
  - CHEST PAIN [None]
  - DEHYDRATION [None]
  - DYSPNOEA [None]
  - MOUTH ULCERATION [None]
  - OESOPHAGEAL ULCER [None]
  - OESOPHAGITIS [None]
